FAERS Safety Report 7770246-3 (Version None)
Quarter: 2011Q3

REPORT INFORMATION
  Report Type: 
  Country: None (occurrence: None)
  Receive Date: 20110922
  Receipt Date: 20110210
  Transmission Date: 20111222
  Serious: No
  Sender: FDA-Public Use
  Company Number: US-ASTRAZENECA-2011SE08028

PATIENT
  Age: 37 Year
  Sex: Female
  Weight: 95.3 kg

DRUGS (7)
  1. LITHIUM CARBONATE [Concomitant]
  2. PROZAC [Concomitant]
  3. ADVAIR DISKUS 100/50 [Concomitant]
  4. PROPRANOLOL [Concomitant]
  5. SEROQUEL [Suspect]
     Indication: BORDERLINE PERSONALITY DISORDER
     Route: 048
     Dates: start: 20110101, end: 20110209
  6. ALBUTEROL [Concomitant]
  7. SEROQUEL [Suspect]
     Indication: BIPOLAR DISORDER
     Route: 048
     Dates: start: 20110101, end: 20110209

REACTIONS (2)
  - DRUG DOSE OMISSION [None]
  - INSOMNIA [None]
